FAERS Safety Report 4654740-X (Version None)
Quarter: 2005Q2

REPORT INFORMATION
  Report Type: 
  Country: None (occurrence: None)
  Receive Date: 20050504
  Receipt Date: 20050421
  Transmission Date: 20051028
  Serious: Yes (Other)
  Sender: FDA-Public Use
  Company Number: 2005063472

PATIENT
  Age: 78 Year
  Sex: Male

DRUGS (3)
  1. NEURONTIN [Suspect]
     Indication: NEUROPATHIC PAIN
     Dosage: 1500 MG ( 1 D), ORAL
     Route: 048
     Dates: start: 20041004, end: 20050120
  2. ANTIHYPERTENSIVES (ANTIHYPERTENSIVES) [Concomitant]
  3. HMG COA REDUCTASE INHIBITORS (HMG COA REDUCTASE INHIBITORS) [Concomitant]

REACTIONS (4)
  - CIRCULATORY COLLAPSE [None]
  - DRUG DOSE OMISSION [None]
  - GRAND MAL CONVULSION [None]
  - TREATMENT NONCOMPLIANCE [None]
